FAERS Safety Report 9068670 (Version 1)
Quarter: 2013Q1

REPORT INFORMATION
  Report Type: Spontaneous
  Country: US (occurrence: None)
  Receive Date: 20130212
  Receipt Date: 20130212
  Transmission Date: 20140127
  Serious: No
  Sender: FDA-Public Use
  Company Number: None

PATIENT
  Age: 72 Year
  Sex: Female
  Weight: 68.04 kg

DRUGS (1)
  1. LORATADINE [Suspect]
     Indication: MULTIPLE ALLERGIES
     Dosage: 1 TABLET   1 X A DAY AT 3:00A  PO
     Route: 048
     Dates: start: 20130208, end: 20130209

REACTIONS (2)
  - Agitation [None]
  - Insomnia [None]
